FAERS Safety Report 5746984-0 (Version None)
Quarter: 2008Q2

REPORT INFORMATION
  Report Type: 
  Country: None (occurrence: None)
  Receive Date: 20080522
  Receipt Date: 20080515
  Transmission Date: 20081010
  Serious: Yes (Hospitalization)
  Sender: FDA-Public Use
  Company Number: GB-PFIZER INC-2008042423

PATIENT
  Age: 60 Year
  Sex: Female
  Weight: 58.9 kg

DRUGS (9)
  1. CHANTIX [Suspect]
     Indication: SMOKING CESSATION THERAPY
     Route: 048
     Dates: start: 20080122, end: 20080306
  2. ACETYLSALICYLIC ACID SRT [Concomitant]
     Route: 048
  3. ATORVASTATIN CALCIUM [Concomitant]
     Route: 048
  4. ESOMEPRAZOLE [Concomitant]
     Route: 048
  5. MONTELUKAST SODIUM [Concomitant]
     Route: 048
  6. RAMIPRIL [Concomitant]
     Route: 048
  7. ALBUTEROL [Concomitant]
     Route: 055
  8. TILDIEM [Concomitant]
     Route: 048
  9. TIOTROPIUM BROMIDE [Concomitant]
     Route: 055

REACTIONS (2)
  - DYSPNOEA [None]
  - WHEEZING [None]
